FAERS Safety Report 5844650-4 (Version None)
Quarter: 2008Q3

REPORT INFORMATION
  Report Type: 
  Country: None (occurrence: None)
  Receive Date: 20080814
  Receipt Date: 20080805
  Transmission Date: 20090109
  Serious: No
  Sender: FDA-Public Use
  Company Number: US-PFIZER INC-2008046354

PATIENT
  Sex: Female
  Weight: 52.272 kg

DRUGS (2)
  1. ACCUPRIL [Suspect]
     Indication: HYPERTENSION
  2. ATENOLOL [Concomitant]
     Indication: CARDIAC DISORDER

REACTIONS (1)
  - NO ADVERSE EVENT [None]
